FAERS Safety Report 6078190-7 (Version None)
Quarter: 2009Q1

REPORT INFORMATION
  Report Type: 
  Country: None (occurrence: None)
  Receive Date: 20090213
  Receipt Date: 20090204
  Transmission Date: 20090719
  Serious: Yes (Other)
  Sender: FDA-Public Use
  Company Number: PHHY2009BR04300

PATIENT

DRUGS (1)
  1. DIOVAN AMLO FIX [Suspect]
     Dosage: 80/5 MG
     Dates: start: 20081001, end: 20081101

REACTIONS (9)
  - DRY MOUTH [None]
  - EYE SWELLING [None]
  - HYPERSENSITIVITY [None]
  - HYPOACUSIS [None]
  - INFLUENZA [None]
  - LIP SWELLING [None]
  - PRURITUS [None]
  - RHINITIS [None]
  - SNEEZING [None]
